FAERS Safety Report 8349105-3 (Version None)
Quarter: 2012Q2

REPORT INFORMATION
  Report Type: 
  Country: None (occurrence: None)
  Receive Date: 20120510
  Receipt Date: 20120502
  Transmission Date: 20120825
  Serious: Yes (Hospitalization, Other)
  Sender: FDA-Public Use
  Company Number: US-BAYER-2011-075455

PATIENT
  Age: 34 Year
  Sex: Female
  Weight: 91 kg

DRUGS (4)
  1. YAZ [Suspect]
     Indication: CONTRACEPTION
     Dosage: UNK
     Dates: start: 20080409, end: 20090501
  2. ZOLOFT [Concomitant]
  3. LEVOXYL [Concomitant]
  4. PRILOSEC [Concomitant]

REACTIONS (3)
  - BILIARY DYSKINESIA [None]
  - CHOLECYSTECTOMY [None]
  - PAIN [None]
